FAERS Safety Report 9612210 (Version 1)
Quarter: 2013Q4

REPORT INFORMATION
  Report Type: Spontaneous
  Country: US (occurrence: US)
  Receive Date: 20131010
  Receipt Date: 20131010
  Transmission Date: 20140711
  Serious: No
  Sender: FDA-Public Use
  Company Number: US-ASTELLAS-2013US010319

PATIENT
  Sex: Female

DRUGS (2)
  1. MYRBETRIQ [Suspect]
     Indication: PRODUCT USED FOR UNKNOWN INDICATION
     Dosage: 50 MG, UID/QD
     Route: 065
     Dates: start: 20130906
  2. MYRBETRIQ [Suspect]
     Dosage: 50 MG, BID
     Route: 065

REACTIONS (3)
  - Intentional drug misuse [Unknown]
  - Incorrect dose administered [Unknown]
  - Drug ineffective [Unknown]
